FAERS Safety Report 11390764 (Version 1)
Quarter: 2015Q3

REPORT INFORMATION
  Report Type: Spontaneous
  Country: AU (occurrence: None)
  Receive Date: 20150813
  Receipt Date: 20150813
  Transmission Date: 20151125
  Serious: Yes (Hospitalization)
  Sender: FDA-Public Use
  Company Number: 1661063

PATIENT
  Age: 51 Year
  Sex: Female

DRUGS (6)
  1. PANTOPRAZOLE [Concomitant]
     Active Substance: PANTOPRAZOLE SODIUM
  2. ERYTHROMYCIN STEARATE (NON-SPECIFIC) [Suspect]
     Active Substance: ERYTHROMYCIN STEARATE
  3. VITAMIN D [Concomitant]
     Active Substance: CHOLECALCIFEROL
  4. ALLOPURINOL. [Concomitant]
     Active Substance: ALLOPURINOL
  5. ALLOPURINOL. [Suspect]
     Active Substance: ALLOPURINOL
  6. PERINDOPRIL [Concomitant]
     Active Substance: PERINDOPRIL

REACTIONS (11)
  - Pleural effusion [None]
  - Congenital cystic kidney disease [None]
  - Disseminated intravascular coagulation [None]
  - Renal tubular necrosis [None]
  - Activated partial thromboplastin time prolonged [None]
  - Blood fibrinogen decreased [None]
  - International normalised ratio increased [None]
  - Hypoalbuminaemia [None]
  - Drug reaction with eosinophilia and systemic symptoms [None]
  - Myocarditis [None]
  - Pneumonitis [None]
